FAERS Safety Report 25813829 (Version 1)
Quarter: 2025Q3

REPORT INFORMATION
  Report Type: Report from Study
  Country: CA (occurrence: CA)
  Receive Date: 20250917
  Receipt Date: 20250917
  Transmission Date: 20251021
  Serious: Yes (Other)
  Sender: NOVARTIS
  Company Number: CA-002147023-NVSC2025CA136516

PATIENT
  Age: 60 Year
  Sex: Female

DRUGS (1)
  1. COSENTYX [Suspect]
     Active Substance: SECUKINUMAB
     Indication: Psoriatic arthropathy
     Dosage: 150 MG, QW, SC WEEKS 0, 1, 2, 3, AND 4
     Route: 058
     Dates: start: 20250826

REACTIONS (8)
  - Oropharyngeal blistering [Unknown]
  - Joint stiffness [Unknown]
  - Joint swelling [Unknown]
  - Burning sensation [Unknown]
  - Cough [Unknown]
  - Oral pain [Unknown]
  - Glossodynia [Unknown]
  - Dysphagia [Unknown]

NARRATIVE: CASE EVENT DATE: 20250826
